FAERS Safety Report 22368189 (Version 1)
Quarter: 2023Q2

REPORT INFORMATION
  Report Type: Spontaneous
  Country: US (occurrence: US)
  Receive Date: 20230525
  Receipt Date: 20230525
  Transmission Date: 20230721
  Serious: No
  Sender: FDA-Public Use
  Company Number: US-MYLANLABS-2023M1048655

PATIENT
  Sex: Female

DRUGS (1)
  1. CYCLOSPORINE [Suspect]
     Active Substance: CYCLOSPORINE
     Indication: Eye infection
     Dosage: UNK UNK, BID(HE USES IT TWICE DAILY BUT SHE WILL BE USING IT NOW ONCE A DAY)
     Route: 047

REACTIONS (3)
  - Off label use [Unknown]
  - Product design issue [Unknown]
  - Product packaging issue [Unknown]
